FAERS Safety Report 17926961 (Version 2)
Quarter: 2021Q4

REPORT INFORMATION
  Report Type: Spontaneous
  Country: US (occurrence: US)
  Receive Date: 20200623
  Receipt Date: 20211214
  Transmission Date: 20220304
  Serious: No
  Sender: FDA-Public Use
  Company Number: US-GLOBAL BLOOD THERAPEUTICS INC-US-GBT-20-00304

PATIENT
  Age: 36 Year
  Sex: Female

DRUGS (6)
  1. OXBRYTA [Suspect]
     Active Substance: VOXELOTOR
     Indication: Sickle cell disease
     Route: 048
     Dates: start: 20200129
  2. ZINC [Concomitant]
     Active Substance: ZINC
     Indication: Sickle cell disease
     Route: 048
     Dates: start: 20171128
  3. MEFLOQUINE [Concomitant]
     Active Substance: MEFLOQUINE
     Indication: Product used for unknown indication
     Route: 048
     Dates: start: 20190703, end: 20200311
  4. FERREX FORTE [Concomitant]
     Indication: Sickle cell disease
     Route: 048
     Dates: start: 20170317
  5. FOLIC ACID [Concomitant]
     Active Substance: FOLIC ACID
     Indication: Sickle cell disease
     Route: 048
     Dates: start: 20170110
  6. ERGOCALCIFEROL [Concomitant]
     Active Substance: ERGOCALCIFEROL
     Indication: Sickle cell disease
     Route: 048
     Dates: start: 20190703

REACTIONS (1)
  - Rash pruritic [Recovered/Resolved]

NARRATIVE: CASE EVENT DATE: 20200305
